FAERS Safety Report 13188577 (Version 2)
Quarter: 2017Q1

REPORT INFORMATION
  Report Type: Spontaneous
  Country: US (occurrence: US)
  Receive Date: 20170206
  Receipt Date: 20170214
  Transmission Date: 20170428
  Serious: Yes (Hospitalization, Other)
  Sender: FDA-Public Use
  Company Number: US-DRREDDYS-USA/USA/17/0086881

PATIENT
  Age: 83 Year
  Sex: Male

DRUGS (2)
  1. CIPROFLOXACIN. [Suspect]
     Active Substance: CIPROFLOXACIN
     Indication: ESCHERICHIA INFECTION
     Route: 048
  2. LEVOFLOXACIN TABLETS [Suspect]
     Active Substance: LEVOFLOXACIN
     Indication: ESCHERICHIA INFECTION
     Route: 048

REACTIONS (2)
  - Thrombocytopenia [Recovering/Resolving]
  - Gastrointestinal disorder [Not Recovered/Not Resolved]
